FAERS Safety Report 7347432-X (Version None)
Quarter: 2011Q1

REPORT INFORMATION
  Report Type: 
  Country: None (occurrence: None)
  Receive Date: 20110311
  Receipt Date: 20110301
  Transmission Date: 20110831
  Serious: Yes (Other)
  Sender: FDA-Public Use
  Company Number: PHHY2011US17015

PATIENT
  Sex: Male

DRUGS (3)
  1. PENICILLIN NOS [Concomitant]
  2. FOLIC ACID [Concomitant]
  3. EXJADE [Suspect]
     Dosage: 500 MG, QD

REACTIONS (1)
  - BLOOD URINE PRESENT [None]
